FAERS Safety Report 6154016-8 (Version None)
Quarter: 2009Q2

REPORT INFORMATION
  Report Type: 
  Country: None (occurrence: None)
  Receive Date: 20090414
  Receipt Date: 20090407
  Transmission Date: 20091009
  Serious: Yes (Hospitalization)
  Sender: FDA-Public Use
  Company Number: PHHY2009JP03243

PATIENT
  Age: 85 Year
  Sex: Female

DRUGS (7)
  1. VOLTAREN [Suspect]
     Indication: PYREXIA
     Dosage: 12.5MG/DAY
     Route: 054
     Dates: start: 20081205, end: 20081209
  2. ISEPACIN [Concomitant]
     Dosage: 400 MG, UNK
     Dates: start: 20081205, end: 20081211
  3. ADEFURONIC [Concomitant]
     Dosage: UNK
     Route: 048
     Dates: start: 20081205, end: 20081209
  4. GENINAX [Concomitant]
     Dosage: 400 MG, UNK
     Route: 048
     Dates: start: 20081205, end: 20081209
  5. TAZOCIN [Concomitant]
     Dosage: UNK
     Dates: start: 20081210, end: 20081211
  6. BLOPRESS [Concomitant]
     Dosage: UNK
     Route: 048
  7. ARTIST [Concomitant]
     Dosage: UNK

REACTIONS (2)
  - PNEUMONIA [None]
  - PYREXIA [None]
